FAERS Safety Report 5124427-8 (Version None)
Quarter: 2006Q3

REPORT INFORMATION
  Report Type: 
  Country: None (occurrence: None)
  Receive Date: 20060816
  Receipt Date: 20060622
  Transmission Date: 20061208
  Serious: No
  Sender: FDA-Public Use
  Company Number: US200606005140

PATIENT
  Sex: Male

DRUGS (3)
  1. CIALIS [Suspect]
     Indication: ERECTILE DYSFUNCTION
     Dosage: 10 MG
     Dates: start: 20060101
  2. CLONAZEPAM [Concomitant]
  3. THIOTHIXENE [Concomitant]

REACTIONS (1)
  - DRUG INEFFECTIVE [None]
